FAERS Safety Report 15608083 (Version 1)
Quarter: 2018Q4

REPORT INFORMATION
  Report Type: Spontaneous
  Country: US (occurrence: US)
  Receive Date: 20181107
  Receipt Date: 20181107
  Transmission Date: 20190205
  Serious: Yes (Other)
  Sender: FDA-Public Use
  Company Number: None

PATIENT
  Age: 76 Year
  Sex: Male
  Weight: 104.33 kg

DRUGS (16)
  1. FIBER [Concomitant]
     Active Substance: PSYLLIUM HUSK
  2. OPDIVO [Suspect]
     Active Substance: NIVOLUMAB
     Indication: METASTATIC MALIGNANT MELANOMA
     Dosage: 1/2 HR BAG; INFUSION EVERY 2 WEEKS
     Dates: start: 20180629
  3. C [Concomitant]
  4. FLAXSEED [Concomitant]
     Active Substance: FLAX SEED
  5. MATZIM LA [Concomitant]
     Active Substance: DILTIAZEM HYDROCHLORIDE
  6. OPDIVO [Suspect]
     Active Substance: NIVOLUMAB
     Indication: PROPHYLAXIS
     Dosage: 1/2 HR BAG; INFUSION EVERY 2 WEEKS
     Dates: start: 20180629
  7. VITAMIN A AND D [Concomitant]
     Active Substance: LANOLIN\PETROLATUM
  8. BENICAR [Concomitant]
     Active Substance: OLMESARTAN MEDOXOMIL
  9. ALLOPURINOL. [Concomitant]
     Active Substance: ALLOPURINOL
  10. FENOFIBRATE. [Concomitant]
     Active Substance: FENOFIBRATE
  11. NEUPOGEN [Concomitant]
     Active Substance: FILGRASTIM
  12. VITAMIN B12 [Concomitant]
     Active Substance: CYANOCOBALAMIN
  13. MULTIPLE [Concomitant]
  14. VITAMIN D3 [Concomitant]
     Active Substance: CHOLECALCIFEROL
  15. FISH OIL [Concomitant]
     Active Substance: FISH OIL
  16. A [Concomitant]

REACTIONS (4)
  - Rectal cancer [None]
  - Skin discolouration [None]
  - Dry skin [None]
  - Skin fissures [None]

NARRATIVE: CASE EVENT DATE: 20180808
